FAERS Safety Report 16360302 (Version 1)
Quarter: 2019Q2

REPORT INFORMATION
  Report Type: Report from Study
  Country: None (occurrence: CO)
  Receive Date: 20190528
  Receipt Date: 20190528
  Transmission Date: 20190711
  Serious: Yes (Hospitalization, Other)
  Sender: FDA-Public Use
  Company Number: CO-ABBVIE-19S-036-2798874-00

PATIENT
  Age: 58 Year
  Sex: Female

DRUGS (1)
  1. ZEMPLAR [Suspect]
     Active Substance: PARICALCITOL
     Indication: HYPERPARATHYROIDISM SECONDARY
     Dosage: FREQUENCY: POST-DIALYSIS
     Route: 042
     Dates: start: 20140303, end: 20170210

REACTIONS (4)
  - Hypertension [Not Recovered/Not Resolved]
  - Tremor [Recovering/Resolving]
  - Headache [Recovering/Resolving]
  - Dialysis related complication [Recovering/Resolving]

NARRATIVE: CASE EVENT DATE: 201903
